FAERS Safety Report 13213393 (Version 1)
Quarter: 2017Q1

REPORT INFORMATION
  Report Type: Spontaneous
  Country: FR (occurrence: FR)
  Receive Date: 20170210
  Receipt Date: 20170210
  Transmission Date: 20170428
  Serious: Yes (Other)
  Sender: FDA-Public Use
  Company Number: FR-TEVA-736617ROM

PATIENT
  Age: 40 Year
  Sex: Male

DRUGS (3)
  1. VINCRISTINE TEVA 0.1 % (1 MG/1 ML) [Suspect]
     Active Substance: VINCRISTINE
     Indication: ANAPLASTIC OLIGODENDROGLIOMA
     Route: 041
     Dates: start: 20160725
  2. NATULAN 50 MG [Suspect]
     Active Substance: PROCARBAZINE HYDROCHLORIDE
     Indication: ANAPLASTIC OLIGODENDROGLIOMA
     Route: 048
     Dates: start: 20160725
  3. BELUSTINE 40 MG [Suspect]
     Active Substance: LOMUSTINE
     Indication: ANAPLASTIC OLIGODENDROGLIOMA
     Route: 048
     Dates: start: 20160718

REACTIONS (2)
  - Hepatocellular injury [Recovering/Resolving]
  - Cytomegalovirus test positive [None]

NARRATIVE: CASE EVENT DATE: 20161118
